FAERS Safety Report 5507299-9 (Version None)
Quarter: 2007Q4

REPORT INFORMATION
  Report Type: 
  Country: None (occurrence: None)
  Receive Date: 20071015
  Receipt Date: 20071009
  Transmission Date: 20080405
  Serious: Yes (Hospitalization, Other)
  Sender: FDA-Public Use
  Company Number: M-07-504

PATIENT
  Age: 53 Year
  Sex: Female
  Weight: 59 kg

DRUGS (4)
  1. ALBUTEIN [Suspect]
     Indication: BLOOD ALBUMIN
     Dosage: 50 ML; DAILY; IV
     Route: 042
     Dates: start: 20070828, end: 20070829
  2. ALBUTEIN [Suspect]
     Indication: SUPPLEMENTATION THERAPY
     Dosage: 50 ML; DAILY; IV
     Route: 042
     Dates: start: 20070828, end: 20070829
  3. OMEPRAZOLE [Concomitant]
  4. CELECOXIB [Concomitant]

REACTIONS (1)
  - PHARMACEUTICAL PRODUCT COMPLAINT [None]
